FAERS Safety Report 14277046 (Version 3)
Quarter: 2018Q1

REPORT INFORMATION
  Report Type: Report from Study
  Country: CO (occurrence: CO)
  Receive Date: 20171212
  Receipt Date: 20180202
  Transmission Date: 20180508
  Serious: Yes (Hospitalization)
  Sender: FDA-Public Use
  Company Number: PHHY2016CO089849

PATIENT
  Age: 67 Year
  Sex: Female
  Weight: 77 kg

DRUGS (11)
  1. REVOLADE [Suspect]
     Active Substance: ELTROMBOPAG
     Dosage: 25 MG, QOD
     Route: 048
  2. REVOLADE [Suspect]
     Active Substance: ELTROMBOPAG
     Dosage: 50 MG, QD
     Route: 048
     Dates: start: 20171102
  3. LEVOTHYROXINE. [Concomitant]
     Active Substance: LEVOTHYROXINE
     Indication: HYPOTHYROIDISM
  4. CORTISONE [Concomitant]
     Active Substance: CORTISONE\HYDROCORTISONE
     Indication: PRODUCT USED FOR UNKNOWN INDICATION
     Route: 065
  5. REVOLADE [Suspect]
     Active Substance: ELTROMBOPAG
     Dosage: 25 MG, QD (2 PILLS DAIL)
     Route: 048
     Dates: start: 201712
  6. PREDNISOLON [Concomitant]
     Active Substance: PREDNISOLONE
     Indication: PLATELET COUNT DECREASED
     Dosage: 1 DF, QD
     Route: 065
  7. REVOLADE [Suspect]
     Active Substance: ELTROMBOPAG
     Indication: IMMUNE THROMBOCYTOPENIC PURPURA
     Dosage: 25 MG, QD
     Route: 048
     Dates: start: 20150811, end: 201512
  8. OMEPRAZOLE. [Concomitant]
     Active Substance: OMEPRAZOLE
     Indication: CHRONIC GASTRITIS
     Dosage: 20 MG, QD
     Route: 048
  9. REVOLADE [Suspect]
     Active Substance: ELTROMBOPAG
     Dosage: 25 MG, QD
     Route: 048
     Dates: start: 201607
  10. REVOLADE [Suspect]
     Active Substance: ELTROMBOPAG
     Dosage: 25 MG, QD
     Route: 048
     Dates: start: 20170811
  11. LEVOTHYROXINE. [Concomitant]
     Active Substance: LEVOTHYROXINE
     Indication: THYROID DISORDER
     Dosage: 50 MG, QD (ONE PILL DAILY)
     Route: 048

REACTIONS (25)
  - Platelet count decreased [Recovering/Resolving]
  - Asthenia [Recovered/Resolved]
  - Pigmentation disorder [Unknown]
  - Depressed mood [Unknown]
  - Influenza [Unknown]
  - Lacrimation increased [Unknown]
  - Concomitant disease aggravated [Unknown]
  - Malaise [Unknown]
  - Limb injury [Recovered/Resolved]
  - Dizziness [Unknown]
  - Petechiae [Unknown]
  - Cough [Unknown]
  - Muscle disorder [Recovered/Resolved]
  - Fatigue [Unknown]
  - Eye disorder [Unknown]
  - Fall [Recovered/Resolved]
  - Chills [Unknown]
  - Thyroid disorder [Unknown]
  - Hypersomnia [Unknown]
  - Nasopharyngitis [Unknown]
  - Contusion [Unknown]
  - Insomnia [Unknown]
  - Pain in extremity [Recovered/Resolved]
  - Blood triglycerides abnormal [Unknown]
  - Inappropriate schedule of drug administration [Unknown]

NARRATIVE: CASE EVENT DATE: 20170628
